FAERS Safety Report 5470098-0 (Version None)
Quarter: 2007Q3

REPORT INFORMATION
  Report Type: 
  Country: None (occurrence: None)
  Receive Date: 20070927
  Receipt Date: 20061025
  Transmission Date: 20080115
  Serious: No
  Sender: FDA-Public Use
  Company Number: US-AMGEN-US198031

PATIENT
  Sex: Female

DRUGS (7)
  1. NEUPOGEN [Suspect]
     Indication: CHEMOTHERAPY
     Route: 058
     Dates: start: 20060601, end: 20060616
  2. XANAX [Concomitant]
     Route: 065
  3. RITUXIMAB [Concomitant]
     Route: 065
  4. CYCLOPHOSPHAMIDE [Concomitant]
     Route: 065
  5. DOXORUBICIN HYDROCHLORIDE [Concomitant]
     Route: 065
  6. VINCRISTINE [Concomitant]
     Route: 065
  7. PREDNISONE [Concomitant]
     Route: 065

REACTIONS (3)
  - ARTHRALGIA [None]
  - BONE PAIN [None]
  - INJECTION SITE PAIN [None]
